FAERS Safety Report 7788504-5 (Version None)
Quarter: 2011Q3

REPORT INFORMATION
  Report Type: 
  Country: None (occurrence: None)
  Receive Date: 20110930
  Receipt Date: 20110919
  Transmission Date: 20111222
  Serious: Yes (Hospitalization, Other)
  Sender: FDA-Public Use
  Company Number: PHHY2011US38510

PATIENT
  Sex: Male
  Weight: 99.773 kg

DRUGS (25)
  1. COLACE [Concomitant]
     Dosage: 100 MG, BID
     Route: 048
     Dates: start: 20101229
  2. HYDROCHLOROTHIAZIDE [Concomitant]
     Indication: BLOOD PRESSURE
     Dosage: 1 DF, QD
     Route: 048
     Dates: start: 20090928
  3. ALBUTEROL [Concomitant]
     Dosage: 90 UG, 1-2 PUFFS PRN
     Dates: start: 20060125
  4. OXYBUTYNIN CHLORIDE [Concomitant]
     Dosage: 2.5 MG, BID
     Route: 048
     Dates: start: 20100524
  5. TRAZODONE HYDROCHLORIDE [Concomitant]
     Indication: INSOMNIA
     Dosage: 50-100 MG, QHS
     Route: 048
  6. ASPIRIN [Concomitant]
     Dosage: 1 DF, QD
     Route: 048
     Dates: start: 20060914
  7. CEPHALEXIN [Concomitant]
     Dosage: 1 DF, QD
     Route: 048
     Dates: start: 20090928
  8. POTASSIUM CHLORIDE W/SODIUM CHLORIDE [Concomitant]
     Dosage: 20-0.45 MEQ/L
     Dates: start: 20080205
  9. ALENDRONATE SODIUM [Concomitant]
     Dosage: 70 MG, QW
     Route: 048
  10. FLONASE [Concomitant]
     Dosage: UNK OT, AS DIRECTED
     Dates: start: 20110414
  11. CIPROFLOXACIN [Concomitant]
     Dosage: UNK UKN, UNK
  12. GILENYA [Suspect]
     Indication: MULTIPLE SCLEROSIS
     Dosage: 0.5 MG, QD
     Route: 048
     Dates: start: 20110308
  13. ATENOLOL [Concomitant]
     Dosage: 1 DF, QD
     Route: 048
     Dates: start: 20060914
  14. FLOMAX [Concomitant]
     Dosage: UNK UKN, UNK
  15. PRILOSEC [Concomitant]
     Dosage: 20 MG, PRN
     Dates: start: 20090928
  16. LEVOTHROID [Concomitant]
     Dosage: 1 DF, QD
     Route: 048
     Dates: start: 20100524
  17. AMBIEN [Concomitant]
     Dosage: 5 MG, QHS
     Dates: start: 20080821
  18. BACLOFEN [Concomitant]
     Dosage: 1 DF, QHS
     Route: 048
     Dates: start: 20090507
  19. POTASSIUM CHLORIDE [Concomitant]
     Dosage: 1 DF, BID
     Route: 048
  20. SPIRONOLACTONE [Concomitant]
     Dosage: 12.5 MG, BID
     Dates: start: 20080205
  21. LISINOPRIL [Concomitant]
     Dosage: 1 DF, QD
     Route: 048
     Dates: start: 20060914
  22. SYNTHROID [Concomitant]
     Dosage: 1 DF, QD
     Route: 048
     Dates: start: 20021025
  23. FLUOXETINE [Concomitant]
     Dosage: 40 MG, EVERY DAY
     Dates: start: 20080512
  24. VITAMIN D [Concomitant]
     Dosage: UNK OT, EVERY DAY
     Dates: start: 20080826
  25. GEODON [Concomitant]
     Indication: DYSTHYMIC DISORDER
     Dosage: 1 DF, EVERY DAY
     Route: 048
     Dates: start: 20100223

REACTIONS (17)
  - MUSCULAR WEAKNESS [None]
  - CONSTIPATION [None]
  - GASTROOESOPHAGEAL REFLUX DISEASE [None]
  - BRONCHIAL HYPERREACTIVITY [None]
  - NAUSEA [None]
  - VERTIGO [None]
  - NASAL CONGESTION [None]
  - SYNCOPE [None]
  - CHRONIC SINUSITIS [None]
  - HYPOTHYROIDISM [None]
  - LOSS OF CONSCIOUSNESS [None]
  - HEART RATE DECREASED [None]
  - INCORRECT DOSE ADMINISTERED [None]
  - ATELECTASIS [None]
  - CENTRAL NERVOUS SYSTEM LESION [None]
  - BLOOD PRESSURE SYSTOLIC DECREASED [None]
  - DIZZINESS [None]
